FAERS Safety Report 21821101 (Version 2)
Quarter: 2023Q1

REPORT INFORMATION
  Report Type: Spontaneous
  Country: US (occurrence: US)
  Receive Date: 20230105
  Receipt Date: 20230118
  Transmission Date: 20230418
  Serious: Yes (Other)
  Sender: FDA-Public Use
  Company Number: US-AUROBINDO-AUR-APL-2022-056905

PATIENT
  Age: 30 Year
  Sex: Male
  Weight: 68 kg

DRUGS (4)
  1. QUETIAPINE FUMARATE [Suspect]
     Active Substance: QUETIAPINE FUMARATE
     Indication: Night sweats
     Dosage: 1 DOSAGE FORM, TWO TIMES A DAY FOR 7 DAYS
     Route: 065
     Dates: start: 20220814, end: 20220814
  2. QUETIAPINE FUMARATE [Suspect]
     Active Substance: QUETIAPINE FUMARATE
     Indication: Dyspnoea
  3. QUETIAPINE FUMARATE [Suspect]
     Active Substance: QUETIAPINE FUMARATE
     Indication: Night sweats
     Dosage: 1 DOSAGE FORM, TWO TIMES A DAY FOR 7 DAYS
     Route: 065
     Dates: start: 20220814, end: 20220814
  4. QUETIAPINE FUMARATE [Suspect]
     Active Substance: QUETIAPINE FUMARATE
     Indication: Dyspnoea

REACTIONS (15)
  - Schizophrenia [Not Recovered/Not Resolved]
  - Dyspnoea [Unknown]
  - Nervous system disorder [Unknown]
  - Near death experience [Unknown]
  - Psychotic disorder [Not Recovered/Not Resolved]
  - Pain [Not Recovered/Not Resolved]
  - Insomnia [Not Recovered/Not Resolved]
  - Abdominal discomfort [Not Recovered/Not Resolved]
  - Headache [Not Recovered/Not Resolved]
  - Weight increased [Not Recovered/Not Resolved]
  - Amnesia [Not Recovered/Not Resolved]
  - Anxiety [Not Recovered/Not Resolved]
  - Fear [Not Recovered/Not Resolved]
  - Panic disorder [Not Recovered/Not Resolved]
  - Diarrhoea [Not Recovered/Not Resolved]
